FAERS Safety Report 16531380 (Version 1)
Quarter: 2019Q3

REPORT INFORMATION
  Report Type: Spontaneous
  Country: US (occurrence: US)
  Receive Date: 20190705
  Receipt Date: 20190705
  Transmission Date: 20191004
  Serious: No
  Sender: FDA-Public Use
  Company Number: US-CURIUM PHARMACEUTICALS-199500132

PATIENT
  Sex: Male

DRUGS (1)
  1. ULTRA-TECHNEKOW [Suspect]
     Active Substance: TECHNETIUM TC-99M

REACTIONS (2)
  - Pyrexia [Unknown]
  - Rash [Unknown]
